FAERS Safety Report 8290808-7 (Version None)
Quarter: 2012Q2

REPORT INFORMATION
  Report Type: 
  Country: None (occurrence: None)
  Receive Date: 20120417
  Receipt Date: 20120416
  Transmission Date: 20120825
  Serious: Yes (Other)
  Sender: FDA-Public Use
  Company Number: TN-ABBOTT-12P-160-0926154-00

PATIENT
  Age: 11 Year
  Sex: Male

DRUGS (1)
  1. DEPAKENE [Suspect]
     Indication: EPILEPSY
     Route: 048
     Dates: start: 20120301, end: 20120405

REACTIONS (3)
  - MEDICATION RESIDUE [None]
  - CONVULSION [None]
  - ABDOMINAL PAIN [None]
